FAERS Safety Report 14664520 (Version 4)
Quarter: 2019Q4

REPORT INFORMATION
  Report Type: Spontaneous
  Country: JP (occurrence: JP)
  Receive Date: 20180321
  Receipt Date: 20191126
  Transmission Date: 20200122
  Serious: Yes (Hospitalization)
  Sender: FDA-Public Use
  Company Number: JP-PFIZER INC-2018112832

PATIENT
  Age: 80 Year
  Sex: Male

DRUGS (4)
  1. WYPAX [Suspect]
     Active Substance: LORAZEPAM
     Indication: ANXIETY DISORDER
     Dosage: UNK (AT BED)
     Route: 048
  2. WYPAX [Suspect]
     Active Substance: LORAZEPAM
     Indication: SLEEP DISORDER
     Dosage: 0.5 MG, 2X/DAY IN THE MORNING AND EVENING
     Route: 048
     Dates: start: 2014
  3. WYPAX [Suspect]
     Active Substance: LORAZEPAM
     Indication: MALAISE
  4. WYPAX [Suspect]
     Active Substance: LORAZEPAM
     Indication: FATIGUE

REACTIONS (2)
  - Therapeutic response decreased [Unknown]
  - Cerebral infarction [Unknown]
